FAERS Safety Report 10008857 (Version 2)
Quarter: 2014Q1

REPORT INFORMATION
  Report Type: Spontaneous
  Country: US (occurrence: US)
  Receive Date: 20140312
  Receipt Date: 20140312
  Transmission Date: 20141002
  Serious: No
  Sender: FDA-Public Use
  Company Number: US-INCYTE CORPORATION-2012IN000231

PATIENT
  Age: 82 Year
  Sex: Male
  Weight: 95.24 kg

DRUGS (4)
  1. JAKAFI [Suspect]
     Indication: MYELOFIBROSIS
     Dosage: 20 MG, BID
     Route: 048
     Dates: start: 20120118
  2. JAKAFI [Suspect]
     Dosage: 20 MG, BID
     Route: 048
  3. ASPIRIN [Concomitant]
  4. GLUCOSAMINE/CHONDROITIN [Concomitant]

REACTIONS (5)
  - Fatigue [Unknown]
  - Haemorrhagic diathesis [Unknown]
  - Insomnia [Not Recovered/Not Resolved]
  - Dizziness [Not Recovered/Not Resolved]
  - Contusion [Not Recovered/Not Resolved]
